FAERS Safety Report 25352422 (Version 1)
Quarter: 2025Q2

REPORT INFORMATION
  Report Type: Spontaneous
  Country: CN (occurrence: CN)
  Receive Date: 20250523
  Receipt Date: 20250523
  Transmission Date: 20250716
  Serious: Yes (Hospitalization, Other)
  Sender: ORGANON
  Company Number: CN-ORGANON-O2505CHN003205

PATIENT
  Age: 54 Year
  Sex: Female
  Weight: 62 kg

DRUGS (5)
  1. EZETIMIBE [Suspect]
     Active Substance: EZETIMIBE
     Indication: Hyperlipidaemia
     Dosage: 10MG, QN, ORALLY|| (EVERY NIGHT)
     Route: 048
     Dates: start: 20250403, end: 20250430
  2. ROSUVASTATIN CALCIUM [Suspect]
     Active Substance: ROSUVASTATIN CALCIUM
     Indication: Hyperlipidaemia
     Dosage: 20MG, QN, ORALLY||
     Route: 048
     Dates: start: 20250406, end: 20250417
  3. ROSUVASTATIN CALCIUM [Suspect]
     Active Substance: ROSUVASTATIN CALCIUM
     Dosage: 10MG, QN, ORALLY||
     Route: 048
     Dates: start: 20250418, end: 20250430
  4. INSULIN GLARGINE [Concomitant]
     Active Substance: INSULIN GLARGINE
     Indication: Type 2 diabetes mellitus
     Dosage: 10IU, QD, SUBCUTANEOUS INJECTION||
     Route: 058
     Dates: start: 20250405, end: 20250430
  5. INSULIN ASPART [Concomitant]
     Active Substance: INSULIN ASPART
     Indication: Type 2 diabetes mellitus
     Dosage: 4IU, TID, SUBCUTANEOUS INJECTION||
     Route: 058
     Dates: start: 20250405, end: 20250430

REACTIONS (1)
  - Liver injury [Recovering/Resolving]

NARRATIVE: CASE EVENT DATE: 20250418
